FAERS Safety Report 6896202-5 (Version None)
Quarter: 2010Q3

REPORT INFORMATION
  Report Type: 
  Country: None (occurrence: None)
  Receive Date: 20100802
  Receipt Date: 20100726
  Transmission Date: 20110219
  Serious: Yes (Congenital Anomaly)
  Sender: FDA-Public Use
  Company Number: A0872417A

PATIENT
  Sex: Male
  Weight: 2.9 kg

DRUGS (4)
  1. COMBIVIR [Suspect]
     Indication: ANTIVIRAL TREATMENT
     Dates: start: 20031110, end: 20040427
  2. VIRAMUNE [Suspect]
     Indication: ANTIVIRAL TREATMENT
     Dates: start: 20031110, end: 20040427
  3. BACTRIM [Concomitant]
  4. FERROUS SULFATE [Concomitant]

REACTIONS (2)
  - DRUG EXPOSURE DURING PREGNANCY [None]
  - VENTRICULAR SEPTAL DEFECT [None]
